FAERS Safety Report 10193126 (Version 1)
Quarter: 2014Q2

REPORT INFORMATION
  Report Type: Spontaneous
  Country: US (occurrence: US)
  Receive Date: 20140524
  Receipt Date: 20140524
  Transmission Date: 20141212
  Serious: No
  Sender: FDA-Public Use
  Company Number: US-SA-2013SA108548

PATIENT
  Age: 66 Year
  Sex: Male
  Weight: 87 kg

DRUGS (2)
  1. LANTUS SOLOSTAR [Suspect]
     Indication: TYPE 2 DIABETES MELLITUS
     Dosage: DOSE: 40 U AM % 60 U PM.?TAKEN FROM: 1 YEAR AGO.
     Route: 051
  2. SOLOSTAR [Concomitant]

REACTIONS (3)
  - Abdominal distension [Not Recovered/Not Resolved]
  - Blood glucose increased [Unknown]
  - Injection site pain [Unknown]
